FAERS Safety Report 7432927-0 (Version None)
Quarter: 2011Q2

REPORT INFORMATION
  Report Type: 
  Country: None (occurrence: None)
  Receive Date: 20110422
  Receipt Date: 20110419
  Transmission Date: 20111010
  Serious: Yes (Other)
  Sender: FDA-Public Use
  Company Number: US-PFIZER INC-2011068258

PATIENT
  Sex: Female

DRUGS (6)
  1. GEODON [Suspect]
     Indication: MAJOR DEPRESSION
     Dosage: 80 MG, 2X/DAY
     Route: 048
     Dates: start: 20100101
  2. LUNESTA [Concomitant]
     Indication: INSOMNIA
     Dosage: UNK
     Dates: start: 20100101
  3. TEMAZEPAM [Concomitant]
     Indication: INSOMNIA
     Dosage: UNK
     Dates: start: 20100101
  4. GEODON [Suspect]
     Indication: PSYCHOTIC DISORDER
     Dosage: 80 MG, 1X/DAY
     Route: 048
     Dates: end: 20110301
  5. ZOLOFT [Concomitant]
     Indication: DEPRESSION
     Dosage: UNK
     Dates: start: 20100101
  6. GEODON [Suspect]
     Dosage: UNK
     Route: 048
     Dates: end: 20110408

REACTIONS (1)
  - EXTRAPYRAMIDAL DISORDER [None]
